FAERS Safety Report 7277217-4 (Version None)
Quarter: 2011Q1

REPORT INFORMATION
  Report Type: 
  Country: None (occurrence: None)
  Receive Date: 20110111
  Receipt Date: 20110111
  Transmission Date: 20110831
  Serious: Yes (Other)
  Sender: FDA-Public Use
  Company Number: None

PATIENT
  Sex: Female

DRUGS (1)
  1. STERILE ALCOHOL PREP PAD 1 PA TRIAD CAT. NO. 10-3101 [Suspect]
     Indication: INFECTION PROPHYLAXIS
     Dosage: 1 PAD 1 CUTANEOUS
     Route: 003
     Dates: start: 20101104, end: 20101104

REACTIONS (2)
  - INJECTION SITE INFECTION [None]
  - PRODUCT QUALITY ISSUE [None]
